FAERS Safety Report 15428056 (Version 1)
Quarter: 2018Q3

REPORT INFORMATION
  Report Type: Spontaneous
  Country: US (occurrence: US)
  Receive Date: 20180926
  Receipt Date: 20180926
  Transmission Date: 20181010
  Serious: No
  Sender: FDA-Public Use
  Company Number: US-PRINSTON PHARMACEUTICAL INC.-2018PRN00672

PATIENT
  Age: 64 Year
  Sex: Male
  Weight: 90.7 kg

DRUGS (8)
  1. VALSARTAN (MYLAN) [Suspect]
     Active Substance: VALSARTAN
     Indication: HYPERTENSION
     Dosage: 80 MG, UP TO 2X/DAY
     Route: 048
     Dates: start: 20100113, end: 20180802
  2. ASPRIN [Concomitant]
     Active Substance: ASPIRIN
     Dosage: 81 MG
  3. VALSARTAN. [Suspect]
     Active Substance: VALSARTAN
     Dosage: 80 MG, UP TO 2X/DAY
     Route: 048
     Dates: start: 20100113, end: 20180802
  4. ATORVASTATIN [Concomitant]
     Active Substance: ATORVASTATIN
  5. VALSARTAN. [Suspect]
     Active Substance: VALSARTAN
     Indication: HYPERTENSION
     Dosage: 80 MG, UP TO 2X/DAY
     Route: 048
     Dates: start: 20100113, end: 20180802
  6. UNSPECIFIED INSULIN [Concomitant]
     Active Substance: INSULIN NOS
  7. CALCIUM [Concomitant]
     Active Substance: CALCIUM
     Dosage: 1200 MG
  8. OMEGA 3 [Concomitant]
     Active Substance: OMEGA-3 FATTY ACIDS
     Dosage: 1200 MG

REACTIONS (8)
  - Blood pressure fluctuation [Unknown]
  - Hypotension [Unknown]
  - Prostatic disorder [Not Recovered/Not Resolved]
  - Dysuria [Not Recovered/Not Resolved]
  - Blood pressure increased [Unknown]
  - Blood glucose decreased [Unknown]
  - Sleep disorder [Unknown]
  - Dizziness [Not Recovered/Not Resolved]

NARRATIVE: CASE EVENT DATE: 201805
